FAERS Safety Report 9852878 (Version 1)
Quarter: 2014Q1

REPORT INFORMATION
  Report Type: Spontaneous
  Country: BR (occurrence: BR)
  Receive Date: 20140129
  Receipt Date: 20140129
  Transmission Date: 20141002
  Serious: Yes (Other)
  Sender: FDA-Public Use
  Company Number: BR-PFIZER INC-2014025598

PATIENT
  Age: 62 Year
  Sex: Female

DRUGS (4)
  1. LYRICA [Suspect]
     Dosage: 75 MG (1 CAPSULE) TWICE A DAY
     Route: 048
     Dates: start: 20130204
  2. ATENOLOL [Concomitant]
     Indication: HYPERTENSION
     Dosage: 50 MG (1 TABLET), DAILY
     Dates: start: 2012
  3. CRESTOR [Concomitant]
     Indication: BLOOD CHOLESTEROL ABNORMAL
     Dosage: 10 MG (1 TABLET), DAILY
     Dates: start: 2012
  4. MILGAMMA [Concomitant]
     Indication: VITAMIN SUPPLEMENTATION

REACTIONS (1)
  - Intervertebral disc protrusion [Unknown]
